FAERS Safety Report 23506964 (Version 2)
Quarter: 2025Q3

REPORT INFORMATION
  Report Type: Spontaneous
  Country: KZ (occurrence: KZ)
  Receive Date: 20240209
  Receipt Date: 20250807
  Transmission Date: 20251020
  Serious: Yes (Hospitalization)
  Sender: NOVARTIS
  Company Number: KZ-002147023-NVSC2024KZ005132

PATIENT
  Age: 11 Month
  Weight: 9.355 kg

DRUGS (1)
  1. ZOLGENSMA [Suspect]
     Active Substance: ONASEMNOGENE ABEPARVOVEC-XIOI
     Indication: Spinal muscular atrophy
     Route: 042
     Dates: start: 20231124, end: 20231124

REACTIONS (6)
  - Measles [Recovered/Resolved]
  - Asthenia [Unknown]
  - Body temperature increased [Unknown]
  - General physical health deterioration [Unknown]
  - Rash [Unknown]
  - Cough [Unknown]

NARRATIVE: CASE EVENT DATE: 20240104
